FAERS Safety Report 8799264 (Version 1)
Quarter: 2012Q4

REPORT INFORMATION
  Report Type: Spontaneous
  Country: US (occurrence: None)
  Receive Date: 20120918
  Receipt Date: 20120918
  Transmission Date: 20130627
  Serious: Yes (Life-Threatening)
  Sender: FDA-Public Use
  Company Number: None

PATIENT
  Age: 62 Year
  Sex: Male
  Weight: 91.17 kg

DRUGS (1)
  1. PROVENGE [Suspect]
     Indication: PROSTATE CANCER
     Dates: start: 20120917, end: 20120917

REACTIONS (3)
  - Chills [None]
  - Chills [None]
  - Blood pressure increased [None]
